FAERS Safety Report 24540054 (Version 2)
Quarter: 2024Q4

REPORT INFORMATION
  Report Type: Spontaneous
  Country: FR (occurrence: FR)
  Receive Date: 20241023
  Receipt Date: 20241111
  Transmission Date: 20250114
  Serious: Yes (Hospitalization)
  Sender: JOHNSON AND JOHNSON
  Company Number: None

PATIENT
  Age: 70 Year
  Sex: Male

DRUGS (19)
  1. RISPERDAL [Suspect]
     Active Substance: RISPERIDONE
     Indication: Psychotic disorder
     Route: 048
     Dates: start: 20220920, end: 20240913
  2. RISPERDAL [Suspect]
     Active Substance: RISPERIDONE
     Route: 065
  3. RISPERDAL [Suspect]
     Active Substance: RISPERIDONE
     Route: 065
  4. RISPERDAL [Suspect]
     Active Substance: RISPERIDONE
     Route: 065
  5. ACETAMINOPHEN [Suspect]
     Active Substance: ACETAMINOPHEN
     Indication: Pyrexia
     Route: 048
     Dates: start: 20240908, end: 20240913
  6. ACETAMINOPHEN [Suspect]
     Active Substance: ACETAMINOPHEN
     Route: 048
     Dates: start: 20240915, end: 20240916
  7. CEFEPIME [Suspect]
     Active Substance: CEFEPIME HYDROCHLORIDE
     Indication: Antibiotic prophylaxis
     Route: 042
     Dates: start: 20240908, end: 20240913
  8. PRAVASTATIN SODIUM [Suspect]
     Active Substance: PRAVASTATIN SODIUM
     Indication: Cardiovascular event prophylaxis
     Route: 048
     Dates: start: 20170811, end: 20240913
  9. LOXAPINE [Suspect]
     Active Substance: LOXAPINE
     Indication: Psychotic disorder
     Route: 048
     Dates: start: 20220920, end: 20240913
  10. LOXAPINE [Suspect]
     Active Substance: LOXAPINE
     Dosage: LOXAPAC 50 MG MORNING, NOON AND EVENING.
     Route: 065
  11. LOXAPINE [Suspect]
     Active Substance: LOXAPINE
     Dosage: LOXAPAC 25MG MIDI.
     Route: 065
  12. TROPATEPINE HYDROCHLORIDE [Suspect]
     Active Substance: TROPATEPINE HYDROCHLORIDE
     Indication: Prophylaxis
     Route: 048
     Dates: start: 20220920, end: 20240913
  13. BRINTELLIX [Suspect]
     Active Substance: VORTIOXETINE HYDROBROMIDE
     Indication: Psychotic disorder
     Dosage: BRINTELLIX 15MG EVERY MORNING.
     Route: 048
     Dates: start: 20240120, end: 20240913
  14. PRAZEPAM [Concomitant]
     Active Substance: PRAZEPAM
     Route: 048
     Dates: start: 20231227
  15. PRAZEPAM [Concomitant]
     Active Substance: PRAZEPAM
     Dosage: PRAZEPAM 10 MG MORNING, NOON, EVENING
  16. ABILIFY MAINTENA [Concomitant]
     Active Substance: ARIPIPRAZOLE
     Dosage: ABILIFY 400 MG:1 IM EVERY 28 DAYS.
     Route: 030
     Dates: start: 20230822
  17. ANETHOLTRITHION [Concomitant]
     Active Substance: ANETHOLTRITHION
     Dosage: SULFARLEM 25MG, MORNING, NOON, EVENING.
  18. MINERAL OIL [Concomitant]
     Active Substance: MINERAL OIL
     Dosage: LANSOYL 1 DOSE IN THE EVENING.
  19. LACTULOSE [Concomitant]
     Active Substance: LACTULOSE
     Dosage: 10G/15ML, 1 SACHET MORNING, NOON, EVENING.

REACTIONS (3)
  - Acute kidney injury [Not Recovered/Not Resolved]
  - Rhabdomyolysis [Recovered/Resolved]
  - Hepatic cytolysis [Recovered/Resolved]

NARRATIVE: CASE EVENT DATE: 20240913
